FAERS Safety Report 10222158 (Version 1)
Quarter: 2014Q2

REPORT INFORMATION
  Report Type: Report from Study
  Country: GB (occurrence: GB)
  Receive Date: 20140606
  Receipt Date: 20140606
  Transmission Date: 20141212
  Serious: No
  Sender: FDA-Public Use
  Company Number: GB-BIOMARINAP-GB-2014-103129

PATIENT
  Age: 12 Year
  Sex: Female

DRUGS (14)
  1. NAGLAZYME [Suspect]
     Indication: MUCOPOLYSACCHARIDOSIS VI
     Dosage: 1 MG/KG, QW
     Route: 041
     Dates: start: 20060927
  2. HEPSAL [Concomitant]
     Indication: PRODUCT USED FOR UNKNOWN INDICATION
     Dosage: 5 ML, PRN
     Route: 042
     Dates: start: 20111020
  3. IBUPROFEN [Concomitant]
     Indication: PROPHYLAXIS
     Dosage: UNK, PRN
     Route: 048
     Dates: start: 20130906
  4. COLECALCIFEROL [Concomitant]
     Indication: VITAMIN D DEFICIENCY
     Dosage: UNK
     Route: 048
     Dates: start: 20140319, end: 20140319
  5. LOSATAN [Concomitant]
     Indication: PROTEINURIA
     Dosage: 25 MG, QD
     Route: 048
     Dates: start: 2013
  6. RANITIDINE [Concomitant]
     Indication: PREMEDICATION
     Dosage: 75 MG, UNK
     Dates: start: 20120130
  7. LORATADINE [Concomitant]
     Indication: PREMEDICATION
     Dosage: 5 MG, UNK
     Dates: start: 20120130
  8. PREDNISOLONE [Concomitant]
     Indication: PREMEDICATION
     Dosage: 20 MG, BID
     Route: 048
     Dates: start: 20120402
  9. RANITIDINE [Concomitant]
     Indication: PRURITUS
     Dosage: 75 MG, SINGLE
     Route: 048
     Dates: start: 201110
  10. CHLORPHENAMINE [Concomitant]
     Indication: PRURITUS
     Dosage: 2 MG, SINGLE
     Route: 048
     Dates: start: 201110
  11. CHLORPHENAMINE [Concomitant]
     Indication: ANTIALLERGIC THERAPY
     Dosage: 2 MG, PRN
     Route: 048
     Dates: start: 20120130
  12. PARACETAMOL [Concomitant]
     Indication: PYREXIA
     Dosage: UNK, PRN
     Route: 048
     Dates: start: 20121004
  13. PARACETAMOL [Concomitant]
     Dosage: UNK
     Dates: start: 20130906
  14. ENALAPRIL [Concomitant]
     Indication: MITRAL VALVE INCOMPETENCE
     Dosage: 30 MG, BID
     Route: 048
     Dates: start: 20130417

REACTIONS (1)
  - Vitamin D deficiency [Recovering/Resolving]
